FAERS Safety Report 5027506-9 (Version None)
Quarter: 2006Q2

REPORT INFORMATION
  Report Type: 
  Country: None (occurrence: None)
  Receive Date: 20060501
  Receipt Date: 20060201
  Transmission Date: 20061013
  Serious: No
  Sender: FDA-Public Use
  Company Number: 2006PV007978

PATIENT
  Age: 47 Year
  Sex: Female
  Weight: 75.7507 kg

DRUGS (1)
  1. SYMLIN [Suspect]
     Indication: WEIGHT DECREASED
     Dosage: 300 MCG;BID;SC
     Route: 058
     Dates: start: 20060115

REACTIONS (5)
  - INJECTION SITE ERYTHEMA [None]
  - INJECTION SITE IRRITATION [None]
  - INJECTION SITE PAIN [None]
  - INJECTION SITE WARMTH [None]
  - WEIGHT DECREASED [None]
